FAERS Safety Report 7747496-5 (Version None)
Quarter: 2011Q3

REPORT INFORMATION
  Report Type: 
  Country: None (occurrence: None)
  Receive Date: 20110913
  Receipt Date: 20110902
  Transmission Date: 20111222
  Serious: Yes (Death, Hospitalization)
  Sender: FDA-Public Use
  Company Number: GB-CEPHALON-2011003890

PATIENT
  Sex: Female

DRUGS (3)
  1. DEXAMETHASONE [Suspect]
     Dates: start: 20110610
  2. TREANDA [Suspect]
     Route: 042
     Dates: start: 20110610, end: 20110617
  3. THALIDOMIDE [Suspect]
     Dates: start: 20110610

REACTIONS (1)
  - ARTHRITIS BACTERIAL [None]
